FAERS Safety Report 13758062 (Version 1)
Quarter: 2017Q3

REPORT INFORMATION
  Report Type: Spontaneous
  Country: US (occurrence: US)
  Receive Date: 20170717
  Receipt Date: 20170717
  Transmission Date: 20171127
  Serious: No
  Sender: FDA-Public Use
  Company Number: US-GLAXOSMITHKLINE-US2017104451

PATIENT
  Sex: Male

DRUGS (2)
  1. VOLTAREN [Suspect]
     Active Substance: DICLOFENAC SODIUM
     Indication: PRODUCT USED FOR UNKNOWN INDICATION
     Dosage: UNK
     Dates: start: 201610
  2. TECNU CALAGEL [Interacting]
     Active Substance: BENZETHONIUM CHLORIDE\DIPHENHYDRAMINE HYDROCHLORIDE\ZINC ACETATE
     Indication: PRODUCT USED FOR UNKNOWN INDICATION
     Dosage: UNK

REACTIONS (6)
  - Burning sensation [Recovered/Resolved]
  - Blister rupture [Unknown]
  - Blister [Not Recovered/Not Resolved]
  - Photosensitivity reaction [Unknown]
  - Drug administered at inappropriate site [Unknown]
  - Drug interaction [Unknown]

NARRATIVE: CASE EVENT DATE: 201703
